FAERS Safety Report 19040828 (Version 1)
Quarter: 2021Q1

REPORT INFORMATION
  Report Type: Report from Study
  Country: None (occurrence: US)
  Receive Date: 20210323
  Receipt Date: 20210323
  Transmission Date: 20210420
  Serious: Yes (Other)
  Sender: FDA-Public Use
  Company Number: US-ABBVIE-21K-163-3826848-00

PATIENT
  Sex: Male

DRUGS (1)
  1. VENCLEXTA [Suspect]
     Active Substance: VENETOCLAX
     Indication: CHRONIC MYELOMONOCYTIC LEUKAEMIA
     Dosage: DRUG VENCLEXTA 50 MILLIGRAM TABLETS AND 10 MILLIGRAM TABLETS
     Route: 048
     Dates: start: 202004

REACTIONS (1)
  - Hospice care [Not Recovered/Not Resolved]
